FAERS Safety Report 7490045-X (Version None)
Quarter: 2011Q2

REPORT INFORMATION
  Report Type: 
  Country: None (occurrence: None)
  Receive Date: 20110517
  Receipt Date: 20110517
  Transmission Date: 20111010
  Serious: Yes (Hospitalization)
  Sender: FDA-Public Use
  Company Number: None

PATIENT
  Age: 25 Year
  Sex: Male
  Weight: 70.3075 kg

DRUGS (1)
  1. ACCUTANE [Suspect]
     Indication: ACNE
     Dosage: 40MG 1/DAILY BUCCAL
     Route: 002
     Dates: start: 19900201, end: 19900801

REACTIONS (4)
  - LACTOSE INTOLERANCE [None]
  - SMALL INTESTINAL BACTERIAL OVERGROWTH [None]
  - IRRITABLE BOWEL SYNDROME [None]
  - POLYP [None]
